FAERS Safety Report 4882496-4 (Version None)
Quarter: 2006Q1

REPORT INFORMATION
  Report Type: 
  Country: None (occurrence: None)
  Receive Date: 20060113
  Receipt Date: 20051231
  Transmission Date: 20060701
  Serious: Yes (Life-Threatening, Hospitalization, Other)
  Sender: FDA-Public Use
  Company Number: 2005156760

PATIENT
  Sex: 0

DRUGS (15)
  1. CELEBREX [Suspect]
     Indication: OSTEOARTHRITIS
     Dosage: 200 MG (200 MG, 1 IN 1 D)
     Dates: start: 20040420
  2. LISINOPRIL [Concomitant]
  3. VERAPAMIL [Concomitant]
  4. LIPITOR [Concomitant]
  5. PLETAL [Concomitant]
  6. LASIX [Concomitant]
  7. METFORMIN HCL [Concomitant]
  8. ACTOS [Concomitant]
  9. PREVACID [Concomitant]
  10. FERROUS SULFATE TAB [Concomitant]
  11. QUININE SULFATE [Concomitant]
  12. DETROL LA [Concomitant]
  13. TYLENOL  NO. 2 (CAFFEINE, CODEINE PHOSPHATE, PARACETAMOL) [Concomitant]
  14. DIOVAN HCT [Concomitant]
  15. CLARITIN [Concomitant]

REACTIONS (4)
  - ANAEMIA [None]
  - GASTRIC ULCER [None]
  - HYPOTENSION [None]
  - UPPER GASTROINTESTINAL HAEMORRHAGE [None]
